FAERS Safety Report 6356516 (Version 8)
Quarter: 2014Q2

REPORT INFORMATION
  Report Type: Report from Study
  Country: US (occurrence: US)
  Receive Date: 20070713
  Receipt Date: 20140618
  Transmission Date: 20141212
  Serious: Yes (Congenital Anomaly, Other)
  Sender: FDA-Public Use
  Company Number: US-BRISTOL-MYERS SQUIBB COMPANY-13837919

PATIENT
  Age: 0 Year
  Sex: Female
  Weight: 1.11 kg

DRUGS (4)
  1. SUSTIVA [Suspect]
     Dosage: 1 DOSAGE FORM= 600 (UNITS NOT SPECIFIED)
     Route: 064
     Dates: end: 20070201
  2. TRUVADA [Suspect]
     Dosage: 1 DOSAGE FORM= 1(UNITS NOT MENTIONED)
     Route: 064
     Dates: start: 20070201
  3. VIRAMUNE [Suspect]
     Dosage: 1 DOSAGEFORM = 400(UNITS NOT MENTIONED)
     Route: 064
     Dates: start: 20070201
  4. BACTRIM [Concomitant]

REACTIONS (8)
  - Dandy-Walker syndrome [None]
  - Stillbirth [None]
  - Umbilical cord abnormality [None]
  - Foetal malformation [None]
  - Foetal growth restriction [None]
  - Breech presentation [None]
  - Oligohydramnios [None]
  - Pregnancy [Recovered/Resolved]
